FAERS Safety Report 10048411 (Version 1)
Quarter: 2014Q1

REPORT INFORMATION
  Report Type: Spontaneous
  Country: US (occurrence: None)
  Receive Date: 20140306
  Receipt Date: 20140306
  Transmission Date: 20141002
  Serious: Yes (Other)
  Sender: FDA-Public Use
  Company Number: 163-21880-11070319

PATIENT
  Age: 77 Year
  Sex: Female
  Weight: 66 kg

DRUGS (19)
  1. REVLIMID [Suspect]
     Indication: PLASMA CELL MYELOMA
     Route: 048
     Dates: start: 200803
  2. DECADRON (DEXAMETHASONE) [Concomitant]
  3. COUMADIN [Concomitant]
  4. VITAMIN K [Concomitant]
  5. SYSTANE ULTRA [Concomitant]
  6. DEXAMETHASONE (DEXAMETHASONE) (TABLETS) [Concomitant]
  7. LISINOPRIL HCTZ [Concomitant]
  8. BENADRYL ALLERGY (BENADRYL ALLERGY) (TABLETS) [Concomitant]
  9. TYLENOL EXTRA STRENGTH (PARACETAMOL) (TABLETS) [Concomitant]
  10. ROLAIDS (DIHYDROXYALUMINUM SODIUM CARBONATE) (CHEWABLE [Concomitant]
  11. MUCINEX ER (GUAIFENESIN) (TABLETS) [Concomitant]
  12. METAMUCIL OT (ISPAGHULA) (POWDER) [Concomitant]
  13. VITAMIN B12 (CYANOCOBALAMIN) (TABLETS) [Concomitant]
  14. CALTRATE 600 + D [Concomitant]
  15. ZOMETA (ZOLEDRONIC ACID) [Concomitant]
  16. POTASSIUM CL ER [Concomitant]
  17. VITAMIN C [Concomitant]
  18. FISH OIL (FISH OIL) [Concomitant]
  19. GLUCOSAMINE CHONDROITIN [Concomitant]

REACTIONS (6)
  - Amnesia [None]
  - Accidental overdose [None]
  - Insomnia [None]
  - Sinusitis [None]
  - Diarrhoea [None]
  - Fatigue [None]
